FAERS Safety Report 9256388 (Version 1)
Quarter: 2013Q2

REPORT INFORMATION
  Report Type: Report from Study
  Country: US (occurrence: US)
  Receive Date: 20130425
  Receipt Date: 20130425
  Transmission Date: 20140414
  Serious: Yes (Hospitalization, Other)
  Sender: FDA-Public Use
  Company Number: US-ABBOTT-13P-163-1079273-00

PATIENT
  Sex: Female
  Weight: 69.46 kg

DRUGS (4)
  1. SYNTHROID [Suspect]
     Indication: THYROIDECTOMY
  2. SYNTHROID [Suspect]
     Indication: THYROID DISORDER
     Dates: start: 1988
  3. UNKNOWN BLOOD PRESSURE MEDICATION [Concomitant]
     Indication: HYPERTENSION
  4. NEURONTIN [Concomitant]
     Indication: DIABETIC NEUROPATHY

REACTIONS (3)
  - Gastrointestinal necrosis [Recovered/Resolved]
  - Staphylococcal infection [Recovered/Resolved]
  - Breast cancer [Recovered/Resolved]
